FAERS Safety Report 4342534-4 (Version None)
Quarter: 2004Q2

REPORT INFORMATION
  Report Type: 
  Country: None (occurrence: None)
  Receive Date: 20040416
  Receipt Date: 20040405
  Transmission Date: 20050107
  Serious: No
  Sender: FDA-Public Use
  Company Number: 2004UW06990

PATIENT
  Sex: Male

DRUGS (1)
  1. PULMICORT [Suspect]

REACTIONS (2)
  - PNEUMONIA [None]
  - WEIGHT DECREASED [None]
